FAERS Safety Report 5488695-5 (Version None)
Quarter: 2007Q4

REPORT INFORMATION
  Report Type: 
  Country: None (occurrence: None)
  Receive Date: 20071017
  Receipt Date: 20071005
  Transmission Date: 20080405
  Serious: Yes (Other)
  Sender: FDA-Public Use
  Company Number: US-PFIZER INC-2007083850

PATIENT
  Sex: Male
  Weight: 60 kg

DRUGS (2)
  1. LYRICA [Suspect]
     Indication: FIBROMYALGIA
  2. ATIVAN [Concomitant]

REACTIONS (22)
  - ABDOMINAL DISTENSION [None]
  - ALOPECIA [None]
  - BACK PAIN [None]
  - BURNING SENSATION [None]
  - CHEST DISCOMFORT [None]
  - CONFUSIONAL STATE [None]
  - DRUG HYPERSENSITIVITY [None]
  - DRY EYE [None]
  - DYSPEPSIA [None]
  - ERYTHEMA [None]
  - HUNGER [None]
  - INFECTION [None]
  - MICTURITION URGENCY [None]
  - NEUROPATHY [None]
  - NIGHT BLINDNESS [None]
  - OEDEMA PERIPHERAL [None]
  - PAIN IN EXTREMITY [None]
  - POLLAKIURIA [None]
  - SKIN REACTION [None]
  - URINARY NITROGEN INCREASED [None]
  - VISION BLURRED [None]
  - WEIGHT DECREASED [None]
